FAERS Safety Report 12921246 (Version 1)
Quarter: 2016Q4

REPORT INFORMATION
  Report Type: Spontaneous
  Country: MX (occurrence: MX)
  Receive Date: 20161107
  Receipt Date: 20161107
  Transmission Date: 20170207
  Serious: Yes (Other)
  Sender: FDA-Public Use
  Company Number: MX-BAYER-2016-211412

PATIENT
  Age: 65 Year
  Sex: Female
  Weight: 67 kg

DRUGS (1)
  1. NEXAVAR [Suspect]
     Active Substance: SORAFENIB
     Indication: HEPATOCELLULAR CARCINOMA
     Dosage: 800 MG, QD
     Route: 048
     Dates: start: 20160228

REACTIONS (3)
  - Skin abrasion [Not Recovered/Not Resolved]
  - Hyperhidrosis [Not Recovered/Not Resolved]
  - Skin haemorrhage [Not Recovered/Not Resolved]

NARRATIVE: CASE EVENT DATE: 201610
